FAERS Safety Report 6651173-1 (Version None)
Quarter: 2010Q1

REPORT INFORMATION
  Report Type: 
  Country: None (occurrence: None)
  Receive Date: 20100323
  Receipt Date: 20100310
  Transmission Date: 20100710
  Serious: Yes (Hospitalization)
  Sender: FDA-Public Use
  Company Number: WAES 1003USA02914

PATIENT
  Age: 62 Year
  Sex: Male

DRUGS (3)
  1. DECADRON [Suspect]
     Indication: MULTIPLE MYELOMA
     Dosage: 20 MG/DAILY
     Route: 048
     Dates: start: 20091117, end: 20100228
  2. BORTEZOMIB [Concomitant]
  3. VORINOSTAT [Concomitant]

REACTIONS (2)
  - CONDITION AGGRAVATED [None]
  - MULTIPLE MYELOMA [None]
